FAERS Safety Report 17791274 (Version 1)
Quarter: 2020Q2

REPORT INFORMATION
  Report Type: Spontaneous
  Country: US (occurrence: US)
  Receive Date: 20200515
  Receipt Date: 20200515
  Transmission Date: 20200714
  Serious: Yes (Life-Threatening, Hospitalization)
  Sender: FDA-Public Use
  Company Number: None

PATIENT
  Age: 20 Year
  Sex: Male
  Weight: 49.5 kg

DRUGS (6)
  1. INTUNIV [Concomitant]
     Active Substance: GUANFACINE HYDROCHLORIDE
  2. CLARITIN [Concomitant]
     Active Substance: LORATADINE
  3. ZOLOFT [Concomitant]
     Active Substance: SERTRALINE HYDROCHLORIDE
  4. WHITE MAENG DA KRATOM 250G [Suspect]
     Active Substance: HERBALS\MITRAGYNINE
     Indication: DEPRESSION
     Route: 048
     Dates: start: 20181226, end: 20200512
  5. MELATONIN [Concomitant]
     Active Substance: MELATONIN
  6. WHITE MAENG DA KRATOM 250G [Suspect]
     Active Substance: HERBALS\MITRAGYNINE
     Indication: ANXIETY
     Route: 048
     Dates: start: 20181226, end: 20200512

REACTIONS (3)
  - Withdrawal syndrome [None]
  - Drug dependence [None]
  - Self-injurious ideation [None]

NARRATIVE: CASE EVENT DATE: 20200513
